FAERS Safety Report 22610768 (Version 1)
Quarter: 2023Q2

REPORT INFORMATION
  Report Type: Spontaneous
  Country: NL (occurrence: NL)
  Receive Date: 20230616
  Receipt Date: 20230616
  Transmission Date: 20230721
  Serious: Yes (Other)
  Sender: FDA-Public Use
  Company Number: None

PATIENT
  Sex: Female

DRUGS (1)
  1. KYLEENA [Suspect]
     Active Substance: LEVONORGESTREL
     Indication: Product used for unknown indication
     Dosage: 17.5?G/DAY
     Route: 015
     Dates: start: 20230520

REACTIONS (3)
  - Gingivitis [Not Recovered/Not Resolved]
  - Toothache [Not Recovered/Not Resolved]
  - Vaginal discharge [Not Recovered/Not Resolved]
